FAERS Safety Report 14786653 (Version 4)
Quarter: 2019Q1

REPORT INFORMATION
  Report Type: Report from Study
  Country: US (occurrence: US)
  Receive Date: 20180420
  Receipt Date: 20190220
  Transmission Date: 20190417
  Serious: Yes (Hospitalization)
  Sender: FDA-Public Use
  Company Number: US-ACTELION-A-NJ2018-171056

PATIENT
  Age: 3 Year
  Sex: Female

DRUGS (27)
  1. BOSENTAN TABLET 32 MG PED US [Suspect]
     Active Substance: BOSENTAN
     Indication: PULMONARY HYPERTENSION
     Dosage: 16 MG, BID
     Route: 048
     Dates: start: 20180329
  2. SPIRONOLACTONE. [Concomitant]
     Active Substance: SPIRONOLACTONE
     Dosage: 14 MG, BID
     Dates: start: 20180807
  3. CHLOROTHIAZIDE. [Concomitant]
     Active Substance: CHLOROTHIAZIDE
     Dosage: 60 MG, QD
  4. METOLAZONE. [Concomitant]
     Active Substance: METOLAZONE
     Dosage: 1.5 MG, UNK
     Dates: start: 20180618
  5. FLUTICASONE. [Concomitant]
     Active Substance: FLUTICASONE
     Dosage: 110 UNK, UNK
  6. ARGININE [Concomitant]
     Active Substance: ARGININE
     Dosage: 750 MG, EVERY 24 HOURS
     Dates: start: 20180630, end: 20180808
  7. EPINEPHRINE. [Concomitant]
     Active Substance: EPINEPHRINE
  8. POTASSIUM CHLORIDE. [Concomitant]
     Active Substance: POTASSIUM CHLORIDE
     Dosage: 14 MEQ, UNK
     Dates: start: 20180807
  9. WARFARIN [Concomitant]
     Active Substance: WARFARIN
     Dosage: 1 MG, QD
     Dates: start: 20180807
  10. REVATIO [Concomitant]
     Active Substance: SILDENAFIL CITRATE
     Dosage: 38 MG, Q12HRS
  11. ACETAMINOPHEN. [Concomitant]
     Active Substance: ACETAMINOPHEN
     Dosage: 160 MG, EVERY 4 HOURS
     Route: 048
     Dates: start: 20171211
  12. RANITIDINE. [Concomitant]
     Active Substance: RANITIDINE
     Dosage: 30 MG, BID
     Route: 048
  13. ALBUTEROL. [Concomitant]
     Active Substance: ALBUTEROL
     Dosage: UNK
     Dates: start: 20180606
  14. ALPHA-D-GALACTOSIDASE [Concomitant]
     Dosage: UNK
     Dates: start: 20180521
  15. METOLAZONE. [Concomitant]
     Active Substance: METOLAZONE
     Dosage: 2 MG, UNK
  16. NEXIUM [Concomitant]
     Active Substance: ESOMEPRAZOLE MAGNESIUM
     Dosage: 10 MG, BID
  17. MILRINONE [Concomitant]
     Active Substance: MILRINONE
     Dosage: 0.5 MG/KG, PER MIN
  18. VASOPRESSIN. [Concomitant]
     Active Substance: VASOPRESSIN
  19. OXYGEN. [Concomitant]
     Active Substance: OXYGEN
  20. WARFARIN [Concomitant]
     Active Substance: WARFARIN
     Dosage: 1.5 MG, QD
     Route: 048
  21. CHLOROTHIAZIDE. [Concomitant]
     Active Substance: CHLOROTHIAZIDE
     Dosage: 60 MG, BID
  22. FUROSEMIDE. [Concomitant]
     Active Substance: FUROSEMIDE
     Dosage: 20 MG, BID
     Route: 048
  23. SOTALOL. [Concomitant]
     Active Substance: SOTALOL
     Dosage: 35 MG (7ML) EVERY 12 HOURS
  24. POLY-VI-SOL [Concomitant]
     Active Substance: VITAMINS
     Dosage: UNK
     Dates: start: 20180606
  25. HEPARIN C [Concomitant]
  26. ASPIRIN. [Concomitant]
     Active Substance: ASPIRIN
     Dosage: 81 MG, QD
     Route: 048
     Dates: start: 20180409
  27. POLYETHYLENE GLYCOL [Concomitant]
     Active Substance: POLYETHYLENE GLYCOLS
     Dosage: 17 G, QD

REACTIONS (28)
  - Delirium [Unknown]
  - Respiratory distress [Unknown]
  - Rhinovirus infection [Unknown]
  - Venous stent insertion [Unknown]
  - Acute respiratory failure [Unknown]
  - Pulmonary oedema [Unknown]
  - Gastrostomy [Unknown]
  - Cardiorenal syndrome [Unknown]
  - Renal failure [Recovering/Resolving]
  - Vomiting [Unknown]
  - Atrial tachycardia [Unknown]
  - Supraventricular tachycardia [Unknown]
  - Abdominal distension [Unknown]
  - Atrial flutter [Unknown]
  - Catheterisation cardiac [Unknown]
  - Right ventricular failure [Unknown]
  - Hepatomegaly [Unknown]
  - Anaemia [Unknown]
  - Packed red blood cell transfusion [Unknown]
  - International normalised ratio increased [Recovering/Resolving]
  - Pulmonary vein stenosis [Unknown]
  - Hypotension [Unknown]
  - Fluid overload [Unknown]
  - Transplant evaluation [Unknown]
  - Parainfluenzae virus infection [Unknown]
  - Coronary arterial stent insertion [Unknown]
  - Transaminases increased [Recovering/Resolving]
  - Arteriovenous fistula [Unknown]

NARRATIVE: CASE EVENT DATE: 20180801
